FAERS Safety Report 22049282 (Version 2)
Quarter: 2023Q1

REPORT INFORMATION
  Report Type: Spontaneous
  Country: US (occurrence: US)
  Receive Date: 20230301
  Receipt Date: 20230317
  Transmission Date: 20230418
  Serious: No
  Sender: FDA-Public Use
  Company Number: US-AGIOS-2302US03264

PATIENT
  Age: 64 Year
  Sex: Female

DRUGS (1)
  1. PYRUKYND [Suspect]
     Active Substance: MITAPIVAT
     Indication: Pyruvate kinase deficiency anaemia
     Dosage: 5 MILLIGRAM, BID
     Route: 065
     Dates: start: 202210

REACTIONS (1)
  - Haemoglobin decreased [Unknown]

NARRATIVE: CASE EVENT DATE: 20230215
